FAERS Safety Report 7285009-5 (Version None)
Quarter: 2011Q1

REPORT INFORMATION
  Report Type: 
  Country: None (occurrence: None)
  Receive Date: 20110210
  Receipt Date: 20101206
  Transmission Date: 20110831
  Serious: Yes (Other)
  Sender: FDA-Public Use
  Company Number: US-BAYER-200927106NA

PATIENT
  Sex: Female
  Weight: 91 kg

DRUGS (1)
  1. MIRENA [Suspect]
     Indication: CONTRACEPTION
     Dosage: CONTINUOUS
     Route: 015
     Dates: start: 20081231, end: 20091209

REACTIONS (4)
  - DEVICE EXPULSION [None]
  - PREGNANCY WITH CONTRACEPTIVE DEVICE [None]
  - POSTPARTUM HAEMORRHAGE [None]
  - PROCEDURAL PAIN [None]
